FAERS Safety Report 8105714 (Version 2)
Quarter: 2012Q4

REPORT INFORMATION
  Report Type: 
  Country: US (occurrence: US)
  Receive Date: 20110825
  Receipt Date: 20121024
  Transmission Date: 20130627
  Serious: Yes (Hospitalization)
  Sender: FDA-Public Use
  Company Number: US-BAYER-2011-075685

PATIENT
  Age: 43 Year
  Sex: Female

DRUGS (6)
  1. YASMIN [Suspect]
     Indication: ACNE
     Route: 048
  2. YAZ [Suspect]
     Dosage: UNK
     Route: 048
  3. DOXYCYCLINE [Concomitant]
  4. ZINC PRODUCTS [Concomitant]
  5. HYDROCHLOROTHIAZIDE [Concomitant]
     Indication: BLOOD PRESSURE MANAGEMENT
  6. LEVAQUIN [Concomitant]
     Indication: PNEUMONIA
     Dosage: UNK

REACTIONS (1)
  - Pulmonary embolism [Recovered/Resolved with Sequelae]
